FAERS Safety Report 26187095 (Version 1)
Quarter: 2025Q4

REPORT INFORMATION
  Report Type: Report from Study
  Country: EU (occurrence: EU)
  Receive Date: 20251222
  Receipt Date: 20251222
  Transmission Date: 20260118
  Serious: Yes (Other)
  Sender: ROCHE
  Company Number: EU-ROCHE-10000460598

PATIENT

DRUGS (2)
  1. RITUXIMAB [Suspect]
     Active Substance: RITUXIMAB
     Indication: Pemphigus
     Dosage: 1 G DAY 1, 1 G DAY 15, 1 G EVERY 6 MONTHS
  2. MYCOPHENOLATE MOFETIL [Suspect]
     Active Substance: MYCOPHENOLATE MOFETIL
     Indication: Pemphigus

REACTIONS (15)
  - Interstitial lung disease [Unknown]
  - Dermatophytosis of nail [Unknown]
  - Infusion related reaction [Unknown]
  - Body tinea [Unknown]
  - Oral herpes [Unknown]
  - Hypotension [Unknown]
  - Atrial fibrillation [Unknown]
  - Ventricular extrasystoles [Unknown]
  - Dyspnoea [Unknown]
  - Pleural effusion [Unknown]
  - Vertigo [Unknown]
  - Oral candidiasis [Unknown]
  - Urinary tract infection [Unknown]
  - Infection [Unknown]
  - Dermatitis bullous [Unknown]
